FAERS Safety Report 4467847-7 (Version None)
Quarter: 2004Q4

REPORT INFORMATION
  Report Type: 
  Country: None (occurrence: None)
  Receive Date: 20041004
  Receipt Date: 20041004
  Transmission Date: 20050328
  Serious: Yes (Other)
  Sender: FDA-Public Use
  Company Number: None

PATIENT
  Age: 31 Year
  Sex: Female
  Weight: 47.6277 kg

DRUGS (1)
  1. DEPO-PROVERA [Suspect]
     Indication: CONTRACEPTION
     Dosage: DEPO PROVERA   150   INTRAMUSCU
     Route: 030
     Dates: start: 20030802, end: 20040202

REACTIONS (9)
  - ABDOMINAL PAIN [None]
  - BACK PAIN [None]
  - BREAST SWELLING [None]
  - BREAST TENDERNESS [None]
  - EMOTIONAL DISTRESS [None]
  - HAEMORRHAGE [None]
  - HOT FLUSH [None]
  - MUSCLE CRAMP [None]
  - PHARMACEUTICAL PRODUCT COMPLAINT [None]
